FAERS Safety Report 26107074 (Version 3)
Quarter: 2025Q4

REPORT INFORMATION
  Report Type: Spontaneous
  Country: US (occurrence: US)
  Receive Date: 20251201
  Receipt Date: 20251219
  Transmission Date: 20260118
  Serious: Yes (Life-Threatening, Hospitalization, Disabling)
  Sender: DR REDDYS
  Company Number: None

PATIENT
  Age: 74 Year
  Sex: Male
  Weight: 78 kg

DRUGS (1)
  1. HEPARIN [Suspect]
     Active Substance: HEPARIN SODIUM
     Indication: Product used for unknown indication
     Dosage: 80 UNITS/KG INITIAL BOLUS WITH SUBSEQUENT BOLUSES TO MAINTAIN ACT (ACTIVATED CLOTTING TIME) OF 250
     Route: 042

REACTIONS (2)
  - Peripheral ischaemia [Recovering/Resolving]
  - Heparin-induced thrombocytopenia [Recovered/Resolved]
